FAERS Safety Report 25079056 (Version 2)
Quarter: 2025Q2

REPORT INFORMATION
  Report Type: Spontaneous
  Country: IT (occurrence: IT)
  Receive Date: 20250314
  Receipt Date: 20250618
  Transmission Date: 20250717
  Serious: Yes (Other)
  Sender: ORPHALAN
  Company Number: IT-ORPHALAN-IT-ORP-25-00059

PATIENT

DRUGS (2)
  1. TRIENTINE TETRAHYDROCHLORIDE [Suspect]
     Active Substance: TRIENTINE TETRAHYDROCHLORIDE
     Indication: Product used for unknown indication
     Dosage: 600 MILLIGRAM, 4 CAPSULES QD
     Route: 065
     Dates: start: 202104
  2. TRIENTINE TETRAHYDROCHLORIDE [Suspect]
     Active Substance: TRIENTINE TETRAHYDROCHLORIDE
     Dosage: 750 MILLIGRAM, 5 CAPSULES QD
     Route: 065
     Dates: start: 20210415, end: 202203

REACTIONS (1)
  - Hepatitis acute [Not Recovered/Not Resolved]

NARRATIVE: CASE EVENT DATE: 20210701
